FAERS Safety Report 14069144 (Version 1)
Quarter: 2017Q4

REPORT INFORMATION
  Report Type: Report from Study
  Country: US (occurrence: US)
  Receive Date: 20171010
  Receipt Date: 20171010
  Transmission Date: 20180321
  Serious: Yes (Other)
  Sender: FDA-Public Use
  Company Number: US-BAYER-2017-173373

PATIENT
  Age: 51 Year
  Sex: Male

DRUGS (2)
  1. NEXAVAR [Suspect]
     Active Substance: SORAFENIB
     Indication: HEPATOCELLULAR CARCINOMA
     Dosage: 400 MG, BID
     Route: 048
     Dates: start: 201709
  2. NEXAVAR [Suspect]
     Active Substance: SORAFENIB
     Indication: HEPATOCELLULAR CARCINOMA
     Dosage: 200 MG, BID
     Route: 048
     Dates: start: 20170829, end: 20170912

REACTIONS (17)
  - Fatigue [Not Recovered/Not Resolved]
  - Asthenia [None]
  - Cough [None]
  - Blood glucose fluctuation [None]
  - Decreased appetite [None]
  - Increased tendency to bruise [None]
  - Abscess [None]
  - Weight decreased [None]
  - Abdominal pain [None]
  - Decreased appetite [None]
  - Off label use [None]
  - Blood glucose increased [None]
  - Tumour marker increased [None]
  - Weight decreased [None]
  - Fatigue [None]
  - White blood cell count decreased [None]
  - Haemoptysis [None]

NARRATIVE: CASE EVENT DATE: 2017
